FAERS Safety Report 15602371 (Version 7)
Quarter: 2019Q1

REPORT INFORMATION
  Report Type: Spontaneous
  Country: CZ (occurrence: CZ)
  Receive Date: 20181109
  Receipt Date: 20190220
  Transmission Date: 20190417
  Serious: Yes (Death, Other)
  Sender: FDA-Public Use
  Company Number: CZ-PFIZER INC-2018456067

PATIENT
  Age: 36 Year
  Sex: Male

DRUGS (4)
  1. CARBOPLATIN. [Suspect]
     Active Substance: CARBOPLATIN
     Indication: NON-SMALL CELL LUNG CANCER
     Dosage: UNK, CYCLIC
     Route: 042
     Dates: start: 201702, end: 201706
  2. VINORELBINE [Suspect]
     Active Substance: VINORELBINE\VINORELBINE TARTRATE
     Dosage: 60 MG/M2, CYCLIC (DAY 1, 8 AND 15 AND COMPLETED THREE TREATMENT CYCLE)
     Route: 048
     Dates: start: 2017
  3. DOCETAXEL. [Suspect]
     Active Substance: DOCETAXEL
     Indication: NON-SMALL CELL LUNG CANCER
     Dosage: 80 MG/M2, IN THREE WEEK INTERVAL
     Route: 065
  4. VINORELBINE [Suspect]
     Active Substance: VINORELBINE\VINORELBINE TARTRATE
     Indication: NON-SMALL CELL LUNG CANCER
     Dosage: 60 MG/M2, CYCLIC
     Route: 048
     Dates: start: 201702, end: 201706

REACTIONS (7)
  - Subclavian vein thrombosis [Unknown]
  - Dysphagia [Unknown]
  - Superior vena cava syndrome [Unknown]
  - Back pain [Unknown]
  - Neutropenia [Unknown]
  - Swelling [Unknown]
  - Death [Fatal]

NARRATIVE: CASE EVENT DATE: 2017
